FAERS Safety Report 7098702-4 (Version None)
Quarter: 2010Q4

REPORT INFORMATION
  Report Type: 
  Country: None (occurrence: None)
  Receive Date: 20101112
  Receipt Date: 20101101
  Transmission Date: 20110411
  Serious: Yes (Hospitalization, Disabling)
  Sender: FDA-Public Use
  Company Number: JP-ROCHE-714134

PATIENT
  Sex: Male

DRUGS (13)
  1. INVIRASE [Suspect]
     Indication: HIV INFECTION
     Route: 048
     Dates: start: 19971003, end: 20050921
  2. RETROVIR [Suspect]
     Indication: HIV INFECTION
     Route: 048
     Dates: start: 19961227, end: 20050921
  3. EPIVIR [Suspect]
     Indication: HIV INFECTION
     Route: 048
     Dates: start: 19970228, end: 20050921
  4. LEXIVA [Suspect]
     Indication: HIV INFECTION
     Route: 048
     Dates: start: 20090128, end: 20090617
  5. EPZICOM [Suspect]
     Indication: HIV INFECTION
     Route: 048
     Dates: start: 20090617, end: 20100127
  6. INTELENCE [Suspect]
     Indication: HIV INFECTION
     Route: 048
     Dates: start: 20090617, end: 20100127
  7. KALETRA [Concomitant]
     Indication: HIV INFECTION
     Route: 048
     Dates: start: 20070221, end: 20090128
  8. NORVIR [Concomitant]
     Indication: HIV INFECTION
     Dosage: DRUG REPORTED AS NORVIR SOFT
     Route: 048
     Dates: start: 20090128, end: 20090617
  9. EFAVIRENZ [Concomitant]
     Indication: HIV INFECTION
     Route: 048
     Dates: start: 20050921, end: 20051004
  10. EFAVIRENZ [Concomitant]
     Route: 048
     Dates: start: 20070207, end: 20070221
  11. TRUVADA [Concomitant]
     Indication: HIV INFECTION
     Dosage: DRUG NAME: TRUVADA(EMTRICITABINE_TENOFOVIR DISOPROXIL FUMARATE)
     Route: 048
     Dates: start: 20070207, end: 20090617
  12. TRUVADA [Concomitant]
     Route: 048
     Dates: start: 20100127
  13. ISENTRESS [Concomitant]
     Indication: HIV INFECTION
     Route: 048
     Dates: start: 20100127

REACTIONS (1)
  - SUBACUTE COMBINED CORD DEGENERATION [None]
